FAERS Safety Report 9508098 (Version 1)
Quarter: 2013Q3

REPORT INFORMATION
  Report Type: Spontaneous
  Country: US (occurrence: US)
  Receive Date: 20130909
  Receipt Date: 20130909
  Transmission Date: 20140515
  Serious: Yes (Other)
  Sender: FDA-Public Use
  Company Number: US-PFIZER INC-2013257180

PATIENT
  Sex: Male

DRUGS (2)
  1. PREPARATION H MEDICATED WIPES [Suspect]
     Dosage: UNK
  2. PREPARATION H MAXIMUM STRENGTH [Suspect]
     Dosage: UNK

REACTIONS (2)
  - Rectal haemorrhage [Unknown]
  - Drug ineffective [Unknown]
